FAERS Safety Report 13748949 (Version 1)
Quarter: 2017Q3

REPORT INFORMATION
  Report Type: Spontaneous
  Country: US (occurrence: US)
  Receive Date: 20170712
  Receipt Date: 20170712
  Transmission Date: 20171127
  Serious: Yes (Disabling, Other)
  Sender: FDA-Public Use
  Company Number: None

PATIENT
  Age: 17 Year
  Sex: Female

DRUGS (1)
  1. TOPIRAMATE. [Suspect]
     Active Substance: TOPIRAMATE
     Indication: MIGRAINE
     Dosage: ?          OTHER DOSE:MG;?
     Route: 048
     Dates: start: 20170630, end: 20170701

REACTIONS (2)
  - Intraocular pressure increased [None]
  - Visual impairment [None]

NARRATIVE: CASE EVENT DATE: 20170701
